FAERS Safety Report 13547293 (Version 1)
Quarter: 2017Q2

REPORT INFORMATION
  Report Type: Spontaneous
  Country: GB (occurrence: GB)
  Receive Date: 20170515
  Receipt Date: 20170515
  Transmission Date: 20170830
  Serious: Yes (Other)
  Sender: FDA-Public Use
  Company Number: GB-BAYER-2017-085856

PATIENT
  Age: 40 Year
  Sex: Male

DRUGS (3)
  1. MOXIFLOXACIN ORAL [Suspect]
     Active Substance: MOXIFLOXACIN
     Indication: MYCOPLASMA GENITALIUM INFECTION
     Dosage: 400 MG, QD FOR 14 DAYS
     Route: 048
  2. AZITHROMYCIN ANHYDROUS. [Concomitant]
     Active Substance: AZITHROMYCIN ANHYDROUS
     Indication: URETHRITIS
     Dosage: 1 G, ONCE
  3. AZITHROMYCIN ANHYDROUS. [Concomitant]
     Active Substance: AZITHROMYCIN ANHYDROUS
     Indication: URETHRITIS
     Dosage: 1 G, UNK

REACTIONS (4)
  - Urethral discharge [Recovered/Resolved]
  - Pathogen resistance [None]
  - Drug ineffective [None]
  - Dysuria [Recovered/Resolved]
